FAERS Safety Report 4781546-3 (Version None)
Quarter: 2005Q3

REPORT INFORMATION
  Report Type: 
  Country: None (occurrence: None)
  Receive Date: 20050928
  Receipt Date: 20050826
  Transmission Date: 20060218
  Serious: Yes (Hospitalization)
  Sender: FDA-Public Use
  Company Number: DE-ROCHE-415672

PATIENT
  Age: 75 Year
  Sex: Female

DRUGS (7)
  1. INTERFERON ALFA-2A [Suspect]
     Indication: METASTATIC MALIGNANT MELANOMA
     Dosage: DOSING FREQUENCY NOT REPORTED.
     Route: 065
     Dates: start: 20050315
  2. DACARBAZINE [Suspect]
     Indication: METASTATIC MALIGNANT MELANOMA
     Dosage: FREQUENCY OF DOSING NOT REPORTED.
     Route: 042
     Dates: start: 20050315, end: 20050912
  3. TAZOBAC [Suspect]
     Dosage: FREQUENCY OF DOSING NOT REPORTED.
     Route: 042
     Dates: start: 20050725, end: 20050803
  4. NORMALIP [Concomitant]
     Indication: HYPERCHOLESTEROLAEMIA
  5. ASPIRIN [Concomitant]
     Indication: MYOCARDIAL INFARCTION
  6. DILTIAZEM [Concomitant]
     Indication: MYOCARDIAL INFARCTION
  7. THYREOTOM [Concomitant]
     Indication: HYPERCHOLESTEROLAEMIA

REACTIONS (1)
  - PANCYTOPENIA [None]
